FAERS Safety Report 17829774 (Version 2)
Quarter: 2020Q2

REPORT INFORMATION
  Report Type: Spontaneous
  Country: RU (occurrence: RU)
  Receive Date: 20200527
  Receipt Date: 20200625
  Transmission Date: 20200714
  Serious: Yes (Hospitalization, Other)
  Sender: FDA-Public Use
  Company Number: RU-SA-2020SA135401

PATIENT

DRUGS (5)
  1. POTASSIUM IODIDE. [Suspect]
     Active Substance: POTASSIUM IODIDE
     Dosage: 200 UG
     Route: 048
  2. FOLIC ACID. [Suspect]
     Active Substance: FOLIC ACID
     Dosage: 400 UG
     Route: 048
  3. MAGNESIUM OROTATE. [Concomitant]
     Active Substance: MAGNESIUM OROTATE
     Indication: HYPERTENSION
     Dosage: 500 MG, 6ID
     Route: 048
  4. MAGNESIUM OROTATE. [Concomitant]
     Active Substance: MAGNESIUM OROTATE
     Dosage: 500 MG, TID
     Route: 048
  5. CLEXANE [Suspect]
     Active Substance: ENOXAPARIN SODIUM
     Dosage: 1 DF, QD
     Route: 058

REACTIONS (13)
  - Vaginal infection [Unknown]
  - Enzyme level increased [Unknown]
  - False labour [Unknown]
  - Blood pressure increased [Unknown]
  - Placental insufficiency [Unknown]
  - Pyelonephritis chronic [Unknown]
  - Pre-eclampsia [Unknown]
  - Headache [Unknown]
  - Exposure during pregnancy [Unknown]
  - Fall [Unknown]
  - Nausea [Unknown]
  - Soft tissue injury [Unknown]
  - Foetal growth restriction [Unknown]
